FAERS Safety Report 8444116-1 (Version None)
Quarter: 2012Q2

REPORT INFORMATION
  Report Type: 
  Country: None (occurrence: None)
  Receive Date: 20120618
  Receipt Date: 20120607
  Transmission Date: 20120825
  Serious: Yes (Other)
  Sender: FDA-Public Use
  Company Number: FR-GENZYME-CAMP-1002179

PATIENT
  Sex: Male
  Weight: 66.5 kg

DRUGS (5)
  1. VALACYCLOVIR HYDROCHLORIDE [Concomitant]
     Indication: PROPHYLAXIS
     Dosage: 500 MG, BID
     Route: 048
     Dates: start: 20081112, end: 20090609
  2. FLUDARA [Suspect]
     Indication: CHRONIC LYMPHOCYTIC LEUKAEMIA
     Dosage: 40 MG/M2, QD FOR FIRST 3 DAYS OF EACH 28 DAY CYCLE (210 MG/CYCLE)
     Route: 058
     Dates: start: 20081013, end: 20090109
  3. CYCLOPHOSPHAMIDE [Suspect]
     Indication: CHRONIC LYMPHOCYTIC LEUKAEMIA
     Dosage: 250 MG/M2, QD DURING THE FIRST 3 DAYS OF EACH 28 DAY CYCLE (1350 MG/CYCLE_
     Route: 048
     Dates: start: 20081013, end: 20090106
  4. MABCAMPATH [Suspect]
     Indication: CHRONIC LYMPHOCYTIC LEUKAEMIA
     Dosage: 30 MG QD FOR THE FIRST 3 DAYS OF EACH 28 DAY CYCLE (90MG/CYCLE)
     Route: 058
     Dates: start: 20081013, end: 20090106
  5. BACTRIM [Concomitant]
     Indication: PROPHYLAXIS
     Dosage: UNK
     Route: 048
     Dates: start: 20081112, end: 20090609

REACTIONS (6)
  - LUNG NEOPLASM [None]
  - HEPATIC LESION [None]
  - DIAPHRAGMATIC DISORDER [None]
  - SPLENOMEGALY [None]
  - GASTROINTESTINAL STROMAL TUMOUR [None]
  - LUNG DISORDER [None]
